FAERS Safety Report 18305973 (Version 1)
Quarter: 2020Q3

REPORT INFORMATION
  Report Type: Spontaneous
  Country: US (occurrence: US)
  Receive Date: 20200924
  Receipt Date: 20200924
  Transmission Date: 20201103
  Serious: Yes (Life-Threatening, Other)
  Sender: FDA-Public Use
  Company Number: US-DRREDDYS-USA/USA/20/0127217

PATIENT
  Age: 37 Year
  Sex: Male

DRUGS (10)
  1. PREDNISONE. [Concomitant]
     Active Substance: PREDNISONE
     Indication: ADULT T-CELL LYMPHOMA/LEUKAEMIA
     Dosage: INFUSION
  2. CYCLOPHOSPHAMIDE. [Concomitant]
     Active Substance: CYCLOPHOSPHAMIDE
     Indication: ADULT T-CELL LYMPHOMA/LEUKAEMIA
     Dosage: INFUSION
  3. DOXORUBICIN HYDROCHLORIDE LIPOSOME INJECTION 20 MG/10 ML (2 MG/ML) AND [Suspect]
     Active Substance: DOXORUBICIN HYDROCHLORIDE
     Indication: HUMAN T-CELL LYMPHOTROPIC VIRUS INFECTION
     Dosage: SINGLE DOSE
     Route: 065
  4. PREDNISONE. [Concomitant]
     Active Substance: PREDNISONE
     Indication: HUMAN T-CELL LYMPHOTROPIC VIRUS INFECTION
  5. DOXORUBICIN HYDROCHLORIDE LIPOSOME INJECTION 20 MG/10 ML (2 MG/ML) AND [Suspect]
     Active Substance: DOXORUBICIN HYDROCHLORIDE
     Indication: ADULT T-CELL LYMPHOMA/LEUKAEMIA
  6. ETOPOSIDE. [Concomitant]
     Active Substance: ETOPOSIDE
     Indication: HUMAN T-CELL LYMPHOTROPIC VIRUS INFECTION
     Dosage: INFUSION
  7. VINCRISTINE [Concomitant]
     Active Substance: VINCRISTINE
     Indication: HUMAN T-CELL LYMPHOTROPIC VIRUS INFECTION
     Dosage: INFUSION
  8. VINCRISTINE [Concomitant]
     Active Substance: VINCRISTINE
     Indication: ADULT T-CELL LYMPHOMA/LEUKAEMIA
  9. ETOPOSIDE. [Concomitant]
     Active Substance: ETOPOSIDE
     Indication: ADULT T-CELL LYMPHOMA/LEUKAEMIA
  10. CYCLOPHOSPHAMIDE. [Concomitant]
     Active Substance: CYCLOPHOSPHAMIDE
     Indication: HUMAN T-CELL LYMPHOTROPIC VIRUS INFECTION

REACTIONS (4)
  - Mitral valve incompetence [Recovering/Resolving]
  - Cardiotoxicity [Recovering/Resolving]
  - Electrocardiogram T wave inversion [Recovering/Resolving]
  - Cardiomyopathy acute [Recovering/Resolving]
